FAERS Safety Report 4862065-2 (Version None)
Quarter: 2005Q4

REPORT INFORMATION
  Report Type: 
  Country: None (occurrence: None)
  Receive Date: 20051201
  Receipt Date: 20050815
  Transmission Date: 20060501
  Serious: No
  Sender: FDA-Public Use
  Company Number: 2005PV001202

PATIENT
  Age: 63 Year
  Sex: Female
  Weight: 81.6475 kg

DRUGS (12)
  1. BYETTA [Suspect]
     Indication: DIABETES MELLITUS NON-INSULIN-DEPENDENT
     Dosage: 5 MCG;BID;SC
     Route: 058
     Dates: start: 20050728, end: 20050814
  2. TAMOXIFEN CITRATE [Concomitant]
  3. METFORMIN [Concomitant]
  4. AVANDIA [Concomitant]
  5. GLIPIZIDE [Concomitant]
  6. HYDROCHLOROTHIAZIDE [Concomitant]
  7. ASPIRIN [Concomitant]
  8. CENTRUM SILVER [Concomitant]
  9. FOLIC ACID [Concomitant]
  10. OIL PILLS [Concomitant]
  11. SLOW-FE [Concomitant]
  12. CLARINEX [Concomitant]

REACTIONS (2)
  - PRODUCTIVE COUGH [None]
  - RHINORRHOEA [None]
